FAERS Safety Report 23470808 (Version 3)
Quarter: 2024Q1

REPORT INFORMATION
  Report Type: Spontaneous
  Country: IN (occurrence: IN)
  Receive Date: 20240202
  Receipt Date: 20240220
  Transmission Date: 20240409
  Serious: Yes (Death, Other)
  Sender: FDA-Public Use
  Company Number: IN-MYLANLABS-2024M1010341

PATIENT
  Age: 70 Year
  Sex: Male

DRUGS (1)
  1. METHOTREXATE [Suspect]
     Active Substance: METHOTREXATE
     Indication: Psoriasis
     Dosage: 5 MILLIGRAM, QD (6 DAYS)
     Route: 065

REACTIONS (5)
  - Toxicity to various agents [Fatal]
  - Skin erosion [Unknown]
  - Mucosal ulceration [Unknown]
  - Pancytopenia [Unknown]
  - Prescribed overdose [Unknown]
